FAERS Safety Report 5353073-6 (Version None)
Quarter: 2007Q2

REPORT INFORMATION
  Report Type: 
  Country: None (occurrence: None)
  Receive Date: 20070611
  Receipt Date: 20070530
  Transmission Date: 20071010
  Serious: Yes (Other)
  Sender: FDA-Public Use
  Company Number: US-PFIZER INC-2007044919

PATIENT
  Sex: Female

DRUGS (1)
  1. NEURONTIN [Suspect]

REACTIONS (5)
  - AFFECT LABILITY [None]
  - HEADACHE [None]
  - ILL-DEFINED DISORDER [None]
  - MICTURITION FREQUENCY DECREASED [None]
  - RENAL PAIN [None]
